FAERS Safety Report 26185599 (Version 1)
Quarter: 2025Q4

REPORT INFORMATION
  Report Type: Spontaneous
  Country: EU (occurrence: EU)
  Receive Date: 20251222
  Receipt Date: 20251222
  Transmission Date: 20260117
  Serious: Yes (Other)
  Sender: TEVA
  Company Number: None

PATIENT
  Age: 74 Year
  Sex: Male
  Weight: 76 kg

DRUGS (1)
  1. PACLITAXEL [Suspect]
     Active Substance: PACLITAXEL
     Indication: Gastric cancer
     Route: 042
     Dates: start: 20220210, end: 20220210

REACTIONS (3)
  - Hyperkalaemia [Unknown]
  - Transaminases increased [Unknown]
  - Anaemia [Unknown]

NARRATIVE: CASE EVENT DATE: 20220216
